FAERS Safety Report 6657443-5 (Version None)
Quarter: 2010Q1

REPORT INFORMATION
  Report Type: 
  Country: None (occurrence: None)
  Receive Date: 20100330
  Receipt Date: 20100319
  Transmission Date: 20100710
  Serious: Yes (Hospitalization, Other)
  Sender: FDA-Public Use
  Company Number: FR-PFIZER INC-2010014859

PATIENT
  Age: 80 Year
  Sex: Female

DRUGS (1)
  1. SUTENT [Suspect]
     Dosage: UNK
     Dates: start: 20090101

REACTIONS (4)
  - ACCIDENT [None]
  - CARDIAC FAILURE [None]
  - CONGESTIVE CARDIOMYOPATHY [None]
  - THROMBOCYTOPENIA [None]
